FAERS Safety Report 14319040 (Version 2)
Quarter: 2018Q1

REPORT INFORMATION
  Report Type: Report from Study
  Country: US (occurrence: US)
  Receive Date: 20171222
  Receipt Date: 20180103
  Transmission Date: 20180509
  Serious: Yes (Death)
  Sender: FDA-Public Use
  Company Number: US-ACTELION-A-NJ2017-164461

PATIENT
  Age: 63 Year
  Sex: Female
  Weight: 65.76 kg

DRUGS (1)
  1. OPSUMIT [Suspect]
     Active Substance: MACITENTAN
     Indication: PULMONARY HYPERTENSION
     Dosage: 10 MG, QD
     Route: 048
     Dates: end: 20171210

REACTIONS (3)
  - Disease progression [Fatal]
  - Cardiac failure [Fatal]
  - Pulmonary arterial hypertension [Fatal]
